FAERS Safety Report 6696935-X (Version None)
Quarter: 2010Q2

REPORT INFORMATION
  Report Type: 
  Country: None (occurrence: None)
  Receive Date: 20100426
  Receipt Date: 20100415
  Transmission Date: 20101027
  Serious: Yes (Other)
  Sender: FDA-Public Use
  Company Number: PHHY2010DE23943

PATIENT
  Sex: Male
  Weight: 102 kg

DRUGS (9)
  1. ALISKIREN ALI+ [Suspect]
     Indication: HYPERTENSION
  2. ORAL ANTIDIABETIC [Concomitant]
     Indication: DIABETES MELLITUS
  3. ACE INHIBITOR NOS [Concomitant]
  4. ANTIHYPERTENSIVES [Concomitant]
     Dosage: UNK
     Dates: start: 20090223
  5. BETA BLOCKING AGENTS [Concomitant]
  6. CALCIUM CHANNEL BLOCKERS [Concomitant]
  7. DIURETICS [Concomitant]
  8. ANTIPLATELET (NSAR) [Suspect]
  9. STATINE [Concomitant]

REACTIONS (7)
  - BLOOD GLUCOSE INCREASED [None]
  - BLOOD PRESSURE INCREASED [None]
  - CORONARY ARTERY DISEASE [None]
  - DYSPNOEA [None]
  - GLYCOSYLATED HAEMOGLOBIN INCREASED [None]
  - HEART RATE DECREASED [None]
  - VASCULAR GRAFT [None]
